FAERS Safety Report 6543494-8 (Version None)
Quarter: 2010Q1

REPORT INFORMATION
  Report Type: 
  Country: None (occurrence: None)
  Receive Date: 20100120
  Receipt Date: 20100115
  Transmission Date: 20100710
  Serious: Yes (Hospitalization)
  Sender: FDA-Public Use
  Company Number: B0607613A

PATIENT
  Sex: Female

DRUGS (5)
  1. AUGMENTIN [Suspect]
     Indication: DRUG USE FOR UNKNOWN INDICATION
     Dosage: 2G PER DAY
     Route: 048
     Dates: start: 20091021, end: 20091028
  2. TICLOPIDINE HCL [Concomitant]
     Route: 065
  3. ENAPREN [Concomitant]
     Route: 065
  4. ASPIRIN [Concomitant]
     Route: 065
  5. MONOKET [Concomitant]
     Route: 065

REACTIONS (4)
  - DYSPNOEA [None]
  - ERYTHEMA [None]
  - MALAISE [None]
  - PRURITUS [None]
